FAERS Safety Report 20994250 (Version 3)
Quarter: 2023Q2

REPORT INFORMATION
  Report Type: Spontaneous
  Country: ES (occurrence: ES)
  Receive Date: 20220622
  Receipt Date: 20230627
  Transmission Date: 20230722
  Serious: Yes (Other)
  Sender: FDA-Public Use
  Company Number: ES-PFM-2022-04883

PATIENT
  Age: 14 Year
  Sex: Male

DRUGS (10)
  1. ISOTRETINOIN [Suspect]
     Active Substance: ISOTRETINOIN
     Indication: Acne
     Dosage: UNK
     Route: 065
  2. METHOTREXATE [Suspect]
     Active Substance: METHOTREXATE
     Indication: Acne
     Dosage: UNK
     Route: 065
  3. ADALIMUMAB [Suspect]
     Active Substance: ADALIMUMAB
     Indication: Acne
     Dosage: UNK
     Route: 065
  4. CLINDAMYCIN [Suspect]
     Active Substance: CLINDAMYCIN
     Indication: Acne
     Dosage: UNK
     Route: 065
  5. APREMILAST [Suspect]
     Active Substance: APREMILAST
     Indication: Acne
     Dosage: UNK
     Route: 065
  6. IXEKIZUMAB [Suspect]
     Active Substance: IXEKIZUMAB
     Indication: Acne
     Dosage: UNK
     Route: 065
  7. DAPSONE [Suspect]
     Active Substance: DAPSONE
     Indication: Acne
     Dosage: UNK
     Route: 065
  8. SECUKINUMAB [Suspect]
     Active Substance: SECUKINUMAB
     Indication: Acne
     Dosage: UNK
     Route: 065
  9. DOXYCYCLINE [Suspect]
     Active Substance: DOXYCYCLINE
     Indication: Acne
     Dosage: UNK
     Route: 065
  10. RIFAMPIN [Suspect]
     Active Substance: RIFAMPIN
     Indication: Acne
     Dosage: UNK
     Route: 065

REACTIONS (9)
  - Acne fulminans [Unknown]
  - SAPHO syndrome [Unknown]
  - Acute respiratory distress syndrome [Unknown]
  - Sacroiliitis [Recovered/Resolved]
  - Off label use [Unknown]
  - Treatment failure [Unknown]
  - Hidradenitis [Unknown]
  - Acne [Unknown]
  - Acne conglobata [Unknown]
